FAERS Safety Report 18917787 (Version 2)
Quarter: 2021Q1

REPORT INFORMATION
  Report Type: Spontaneous
  Country: DE (occurrence: DE)
  Receive Date: 20210219
  Receipt Date: 20210312
  Transmission Date: 20210420
  Serious: Yes (Other)
  Sender: FDA-Public Use
  Company Number: DE-PFIZER INC-2021129767

PATIENT
  Age: 31 Year
  Sex: Female
  Weight: 78 kg

DRUGS (2)
  1. CYTOTEC [Suspect]
     Active Substance: MISOPROSTOL
     Indication: LABOUR INDUCTION
     Dosage: 25 UG (TOTAL)
     Dates: start: 20091011, end: 20091011
  2. CYTOTEC [Suspect]
     Active Substance: MISOPROSTOL
     Dosage: 275 UG (AT 7 A.M.: 25 ?G, 9.15 A.M.: 50 ?G, 1.30 P.M.: 100 ?G, 5.30 P.M.: 100 ?G)
     Dates: start: 20091012, end: 20091012

REACTIONS (10)
  - Overdose [Unknown]
  - Circulatory collapse [Recovered/Resolved]
  - Maternal exposure during delivery [Recovered/Resolved]
  - Feeling cold [Recovered/Resolved]
  - Haematoma [Recovered/Resolved]
  - Venous haemorrhage [Recovered/Resolved]
  - Uterine tachysystole [Recovered/Resolved]
  - Vulvovaginal injury [Recovered/Resolved]
  - Haemoglobin decreased [Recovered/Resolved]
  - Off label use [Unknown]

NARRATIVE: CASE EVENT DATE: 200910
